FAERS Safety Report 18996486 (Version 1)
Quarter: 2021Q1

REPORT INFORMATION
  Report Type: Spontaneous
  Country: US (occurrence: US)
  Receive Date: 20210310
  Receipt Date: 20210310
  Transmission Date: 20210420
  Serious: Yes (Other)
  Sender: FDA-Public Use
  Company Number: None

PATIENT
  Age: 22 Year
  Sex: Female
  Weight: 55.35 kg

DRUGS (3)
  1. ENTYVIO [Suspect]
     Active Substance: VEDOLIZUMAB
     Indication: COLITIS ULCERATIVE
     Dosage: ?          OTHER FREQUENCY:EVERY 8 WEEKS;?
     Route: 041
     Dates: start: 20200721, end: 20210306
  2. FAMOTIDINE. [Concomitant]
     Active Substance: FAMOTIDINE
  3. BENADRYL [Concomitant]
     Active Substance: DIPHENHYDRAMINE HYDROCHLORIDE

REACTIONS (3)
  - Feeling hot [None]
  - Flushing [None]
  - Palpitations [None]

NARRATIVE: CASE EVENT DATE: 20210306
